FAERS Safety Report 23097907 (Version 1)
Quarter: 2023Q4

REPORT INFORMATION
  Report Type: Spontaneous
  Country: DE (occurrence: DE)
  Receive Date: 20231023
  Receipt Date: 20231023
  Transmission Date: 20240110
  Serious: Yes (Hospitalization)
  Sender: FDA-Public Use
  Company Number: DE-BoehringerIngelheim-2023-BI-266993

PATIENT
  Age: 79 Year
  Sex: Male

DRUGS (9)
  1. JARDIANCE [Suspect]
     Active Substance: EMPAGLIFLOZIN
     Indication: Chronic kidney disease
  2. JARDIANCE [Suspect]
     Active Substance: EMPAGLIFLOZIN
     Indication: Type 2 diabetes mellitus
  3. TAMSULOSIN [Concomitant]
     Active Substance: TAMSULOSIN
     Indication: Product used for unknown indication
     Dosage: UNIT DOSE--1
  4. Phenprocoumon 3mg [Concomitant]
     Indication: Atrial fibrillation
     Dosage: ACCORDING INR
  5. Candesartan/Amlodipin 16/5mg [Concomitant]
     Indication: Product used for unknown indication
     Dosage: UNIT 1 (16/5MG)
  6. BISOPROLOL [Concomitant]
     Active Substance: BISOPROLOL\BISOPROLOL FUMARATE
     Indication: Product used for unknown indication
  7. Torasemid  10mg [Concomitant]
     Indication: Product used for unknown indication
  8. SPIRONOLACTONE [Concomitant]
     Active Substance: SPIRONOLACTONE
     Indication: Product used for unknown indication
  9. Atorvastatin/Ezetimib 40/10 mg [Concomitant]
     Indication: Product used for unknown indication
     Dosage: UNIT 1 (40/10 MG)

REACTIONS (6)
  - Urinary tract obstruction [Unknown]
  - Postrenal failure [Unknown]
  - Oedema peripheral [Unknown]
  - Dyspnoea [Unknown]
  - Haematuria [Recovering/Resolving]
  - Polyuria [Unknown]
